FAERS Safety Report 6644523-3 (Version None)
Quarter: 2010Q1

REPORT INFORMATION
  Report Type: 
  Country: None (occurrence: None)
  Receive Date: 20100319
  Receipt Date: 20100319
  Transmission Date: 20100710
  Serious: Yes (Disabling)
  Sender: FDA-Public Use
  Company Number: None

PATIENT
  Sex: Female
  Weight: 74.8435 kg

DRUGS (6)
  1. HALDOL [Suspect]
     Indication: SCHIZOPHRENIA, PARANOID TYPE
     Dates: start: 19810101
  2. HALDOL [Suspect]
     Indication: SCHIZOPHRENIA, PARANOID TYPE
     Dates: start: 19750101
  3. HALDOL [Suspect]
     Indication: SCHIZOPHRENIA, PARANOID TYPE
     Dates: start: 19830101
  4. COGENTIN [Suspect]
     Indication: SCHIZOPHRENIA, PARANOID TYPE
     Dates: start: 19810101
  5. COGENTIN [Suspect]
     Indication: SCHIZOPHRENIA, PARANOID TYPE
     Dates: start: 19750101
  6. COGENTIN [Suspect]
     Indication: SCHIZOPHRENIA, PARANOID TYPE
     Dates: start: 19830101

REACTIONS (3)
  - DISTURBANCE IN SEXUAL AROUSAL [None]
  - GENITAL HYPOAESTHESIA [None]
  - LOSS OF LIBIDO [None]
